FAERS Safety Report 9843635 (Version 1)
Quarter: 2013Q4

REPORT INFORMATION
  Report Type: Spontaneous
  Country: US (occurrence: None)
  Receive Date: 20131223
  Receipt Date: 20131223
  Transmission Date: 20140711
  Serious: No
  Sender: FDA-Public Use
  Company Number: 221426LEO

PATIENT
  Age: 68 Year
  Sex: Male

DRUGS (2)
  1. PICATO GEL [Suspect]
     Indication: PHOTOSENSITIVITY REACTION
     Route: 061
     Dates: start: 20130422, end: 20130424
  2. INSULIN (INSULIN) [Concomitant]

REACTIONS (2)
  - Periorbital oedema [None]
  - Drug administration error [None]
